FAERS Safety Report 5320043-3 (Version None)
Quarter: 2007Q2

REPORT INFORMATION
  Report Type: 
  Country: None (occurrence: None)
  Receive Date: 20070509
  Receipt Date: 20070503
  Transmission Date: 20071010
  Serious: Yes (Other)
  Sender: FDA-Public Use
  Company Number: FR-AVENTIS-200612819FR

PATIENT
  Age: 70 Year
  Sex: Female

DRUGS (6)
  1. ARAVA [Suspect]
     Indication: RHEUMATOID ARTHRITIS
     Route: 048
     Dates: end: 20060901
  2. ARAVA [Suspect]
     Route: 048
     Dates: start: 20070329
  3. FEMARA [Concomitant]
     Indication: BREAST CANCER
     Route: 048
     Dates: start: 20060614, end: 20060910
  4. FEMARA [Concomitant]
     Route: 048
     Dates: start: 20070116
  5. ACTONEL [Concomitant]
     Indication: OSTEOPOROSIS
     Route: 048
  6. OROCAL D3 [Concomitant]
     Indication: OSTEOPOROSIS
     Route: 048

REACTIONS (2)
  - BREAST CANCER [None]
  - NEUTROPENIA [None]
